FAERS Safety Report 10079454 (Version 1)
Quarter: 2014Q2

REPORT INFORMATION
  Report Type: Spontaneous
  Country: CA (occurrence: CA)
  Receive Date: 20140415
  Receipt Date: 20140415
  Transmission Date: 20141212
  Serious: Yes (Other)
  Sender: FDA-Public Use
  Company Number: CA-BRISTOL-MYERS SQUIBB COMPANY-20607412

PATIENT
  Age: 7 Decade
  Sex: Male

DRUGS (2)
  1. ELIQUIS [Suspect]
  2. DILTIAZEM HCL [Suspect]

REACTIONS (2)
  - Nasal septum perforation [Unknown]
  - Epistaxis [Unknown]
